FAERS Safety Report 7053658-5 (Version None)
Quarter: 2010Q4

REPORT INFORMATION
  Report Type: 
  Country: None (occurrence: None)
  Receive Date: 20101020
  Receipt Date: 20101011
  Transmission Date: 20110411
  Serious: Yes (Death, Hospitalization, Other)
  Sender: FDA-Public Use
  Company Number: TH-ROCHE-734636

PATIENT

DRUGS (3)
  1. CAPECITABINE [Suspect]
     Dosage: ADJUVANT OR PALLIATIVE TREATMENT, FROM DAY 1 TO 14 EVERY 3 WEEKS
     Route: 065
  2. CAPECITABINE [Suspect]
     Dosage: ADJUVANT OR PALLIATIVE TREATMENT, FROM DAY 1 TO 14 EVERY 3 WEEKS
     Route: 065
  3. PYRIDOXINE HCL [Suspect]
     Indication: PROPHYLAXIS
     Route: 065

REACTIONS (7)
  - DEATH [None]
  - DIARRHOEA [None]
  - FATIGUE [None]
  - FEBRILE NEUTROPENIA [None]
  - NAUSEA [None]
  - PALMAR-PLANTAR ERYTHRODYSAESTHESIA SYNDROME [None]
  - VOMITING [None]
